FAERS Safety Report 5019516-2 (Version None)
Quarter: 2006Q2

REPORT INFORMATION
  Report Type: 
  Country: None (occurrence: None)
  Receive Date: 20060414
  Receipt Date: 20050420
  Transmission Date: 20061013
  Serious: Yes (Other)
  Sender: FDA-Public Use
  Company Number: US-JNJFOC-20050404988

PATIENT
  Sex: 0

DRUGS (1)
  1. ULTRAM [Suspect]
     Indication: HEADACHE

REACTIONS (1)
  - DRUG ABUSER [None]
